FAERS Safety Report 9336668 (Version 3)
Quarter: 2013Q4

REPORT INFORMATION
  Report Type: Spontaneous
  Country: GB (occurrence: GB)
  Receive Date: 20130607
  Receipt Date: 20131104
  Transmission Date: 20140711
  Serious: Yes (Hospitalization, Other)
  Sender: FDA-Public Use
  Company Number: PHFR2013GB003253

PATIENT
  Age: 16 Year
  Sex: Male
  Weight: 58.5 kg

DRUGS (3)
  1. EXJADE [Suspect]
     Indication: THALASSAEMIA BETA
     Dosage: 2 G (30 MG PER KG)
     Route: 048
     Dates: start: 20121207, end: 20130601
  2. ASCORBIC ACID [Concomitant]
     Dosage: UNK UKN, UNK
     Route: 048
     Dates: start: 200005, end: 20130601
  3. COPPER [Concomitant]
     Indication: BLOOD COPPER DECREASED
     Dosage: UNK UKN, UNK
     Route: 048
     Dates: start: 20100906, end: 20130601

REACTIONS (9)
  - Coagulation test abnormal [Recovered/Resolved]
  - Pancreatitis [Unknown]
  - Hepatotoxicity [Recovered/Resolved]
  - Liver function test abnormal [Recovering/Resolving]
  - Nephropathy toxic [Recovered/Resolved]
  - Gastritis [Recovered/Resolved]
  - Vomiting [Recovering/Resolving]
  - Abdominal pain [Recovering/Resolving]
  - Renal tubular disorder [Not Recovered/Not Resolved]
